FAERS Safety Report 5205988-7 (Version None)
Quarter: 2007Q1

REPORT INFORMATION
  Report Type: 
  Country: None (occurrence: None)
  Receive Date: 20070111
  Receipt Date: 20070103
  Transmission Date: 20070707
  Serious: Yes (Other)
  Sender: FDA-Public Use
  Company Number: US-JNJFOC-20060906025

PATIENT
  Sex: Female
  Weight: 86.18 kg

DRUGS (6)
  1. TOPAMAX [Suspect]
     Indication: DEPRESSION
     Route: 048
  2. RISPERDAL [Concomitant]
     Indication: THINKING ABNORMAL
     Route: 048
  3. RISPERDAL [Concomitant]
     Indication: BIPOLAR DISORDER
     Route: 048
  4. RISPERDAL [Concomitant]
     Indication: DEPRESSION
     Route: 048
  5. RISPERDAL [Concomitant]
     Indication: ANXIETY
     Dosage: 0.25 MG IN THE AM/ 0.5 MG IN THE PM
     Route: 048
  6. LEXAPRO [Concomitant]
     Indication: DEPRESSION
     Route: 048

REACTIONS (6)
  - DEPRESSION [None]
  - DYSURIA [None]
  - MICTURITION URGENCY [None]
  - PHOTOPSIA [None]
  - VISION BLURRED [None]
  - VITREOUS FLOATERS [None]
